FAERS Safety Report 5666924-2 (Version None)
Quarter: 2008Q1

REPORT INFORMATION
  Report Type: 
  Country: None (occurrence: None)
  Receive Date: 20080315
  Receipt Date: 20080103
  Transmission Date: 20080703
  Serious: No
  Sender: FDA-Public Use
  Company Number: US-ABBOTT-08P-163-0432483-00

PATIENT
  Sex: Male
  Weight: 83.99 kg

DRUGS (4)
  1. HUMIRA [Suspect]
     Indication: CROHN'S DISEASE
     Route: 058
     Dates: end: 20071214
  2. HUMIRA [Suspect]
     Route: 058
     Dates: start: 20070501, end: 20070501
  3. HUMIRA [Suspect]
     Route: 058
  4. PREDNISONE ACETATE [Concomitant]
     Indication: CROHN'S DISEASE
     Route: 048

REACTIONS (4)
  - ARTHRALGIA [None]
  - MYALGIA [None]
  - RASH [None]
  - SYSTEMIC LUPUS ERYTHEMATOSUS [None]
